FAERS Safety Report 15559740 (Version 1)
Quarter: 2018Q4

REPORT INFORMATION
  Report Type: Spontaneous
  Country: US (occurrence: US)
  Receive Date: 20181029
  Receipt Date: 20181029
  Transmission Date: 20190205
  Serious: Yes (Hospitalization)
  Sender: FDA-Public Use
  Company Number: US-CIPLA (EU) LIMITED-STD201401-000141

PATIENT

DRUGS (2)
  1. ZOLPIDEM TARTRATE. [Suspect]
     Active Substance: ZOLPIDEM TARTRATE
     Dosage: UNK, ON UNKNOWN AMOUNTS
     Route: 048
  2. AMLODIPINE [Suspect]
     Active Substance: AMLODIPINE BESYLATE
     Dosage: UNK, ON UNKNOWN AMOUNTS
     Route: 048

REACTIONS (4)
  - Shock [Unknown]
  - Overdose [Unknown]
  - Atrial fibrillation [Unknown]
  - Hypotension [Unknown]
